FAERS Safety Report 25797158 (Version 1)
Quarter: 2025Q3

REPORT INFORMATION
  Report Type: Spontaneous
  Country: EU (occurrence: EU)
  Receive Date: 20250912
  Receipt Date: 20250912
  Transmission Date: 20251020
  Serious: Yes (Hospitalization, Other)
  Sender: ROCHE
  Company Number: None

PATIENT
  Age: 76 Year
  Sex: Male
  Weight: 124 kg

DRUGS (5)
  1. PIASKY [Suspect]
     Active Substance: CROVALIMAB-AKKZ
     Indication: Paroxysmal nocturnal haemoglobinuria
     Route: 058
     Dates: start: 20250605, end: 2025
  2. WARFARIN SODIUM [Concomitant]
     Active Substance: WARFARIN SODIUM
     Indication: Anticoagulant therapy
     Dates: start: 20190428
  3. ENALAPRIL [Concomitant]
     Active Substance: ENALAPRIL
     Indication: Hypertension
     Dates: start: 2014
  4. ATORVASTATIN [Concomitant]
     Active Substance: ATORVASTATIN
     Indication: Hypercholesterolaemia
     Dates: start: 2012
  5. GABAPENTIN [Concomitant]
     Active Substance: GABAPENTIN
     Indication: Pain
     Dates: start: 20250307

REACTIONS (12)
  - General physical health deterioration [Unknown]
  - Rash [Unknown]
  - Nausea [Unknown]
  - Pyrexia [Unknown]
  - C-reactive protein increased [Unknown]
  - Fatigue [Unknown]
  - Hepatic function abnormal [Recovering/Resolving]
  - Constipation [Unknown]
  - Serum sickness [Not Recovered/Not Resolved]
  - Flatulence [Unknown]
  - Arthralgia [Unknown]
  - Immune-mediated adverse reaction [Not Recovered/Not Resolved]

NARRATIVE: CASE EVENT DATE: 20250613
